FAERS Safety Report 6862997-X (Version None)
Quarter: 2010Q3

REPORT INFORMATION
  Report Type: 
  Country: None (occurrence: None)
  Receive Date: 20100721
  Receipt Date: 20100713
  Transmission Date: 20110219
  Serious: Yes (Other)
  Sender: FDA-Public Use
  Company Number: TW-PFIZER INC-2010087389

PATIENT
  Sex: Female

DRUGS (1)
  1. DOSTINEX [Suspect]
     Dosage: UNK
     Dates: start: 20100201, end: 20100501

REACTIONS (2)
  - BLOOD PROLACTIN DECREASED [None]
  - THYROID NEOPLASM [None]
